FAERS Safety Report 4897849-8 (Version None)
Quarter: 2006Q1

REPORT INFORMATION
  Report Type: 
  Country: None (occurrence: None)
  Receive Date: 20060130
  Receipt Date: 20060130
  Transmission Date: 20060701
  Serious: Yes (Hospitalization, Other)
  Sender: FDA-Public Use
  Company Number: None

PATIENT
  Sex: Male
  Weight: 109 kg

DRUGS (4)
  1. XELODA [Suspect]
     Indication: RECTAL CANCER
     Dosage: 112000 MG
     Dates: start: 20050911, end: 20051019
  2. XELODA [Suspect]
     Indication: RECTAL CANCER
     Dosage: 112000 MG
     Dates: start: 20051215
  3. ELOXATIN [Suspect]
     Dosage: 600 MG
     Dates: start: 20050912, end: 20051010
  4. ELOXATIN [Suspect]
     Dosage: 600 MG
     Dates: start: 20051215

REACTIONS (19)
  - ABSCESS INTESTINAL [None]
  - BACTERIA BODY FLUID IDENTIFIED [None]
  - BLOOD CREATININE INCREASED [None]
  - BLOOD UREA INCREASED [None]
  - CHEST X-RAY ABNORMAL [None]
  - DYSPNOEA [None]
  - FATIGUE [None]
  - GASTROINTESTINAL INFLAMMATION [None]
  - HAEMOGLOBIN DECREASED [None]
  - HYDRONEPHROSIS [None]
  - NASAL CONGESTION [None]
  - OBSTRUCTION [None]
  - PERIRECTAL ABSCESS [None]
  - PRODUCTIVE COUGH [None]
  - PYREXIA [None]
  - RENAL DISORDER [None]
  - RENAL IMPAIRMENT [None]
  - SMALL INTESTINAL OBSTRUCTION [None]
  - SPUTUM DISCOLOURED [None]
